FAERS Safety Report 4913567-1 (Version None)
Quarter: 2006Q1

REPORT INFORMATION
  Report Type: 
  Country: None (occurrence: None)
  Receive Date: 20060216
  Receipt Date: 20060206
  Transmission Date: 20060701
  Serious: Yes (Other)
  Sender: FDA-Public Use
  Company Number: 2006AC00257

PATIENT
  Age: 39 Year
  Sex: Male

DRUGS (7)
  1. BUPIVACAINE [Suspect]
     Indication: ANALGESIC EFFECT
     Route: 008
  2. BUPIVACAINE [Suspect]
     Dosage: AFTER 24 HOURS THE DOSE WAS REDUCED AS A DENSE MOTOR AND SENSORY BLOCK PERSISTED
     Route: 008
  3. FENTANYL [Suspect]
     Indication: ANALGESIC EFFECT
     Route: 008
  4. FENTANYL [Suspect]
     Dosage: AFTER 24 HOURS THE DOSE WAS REDUCED AS A DENSE MOTOR AND SENSORY BLOCK PERSISTED
     Route: 008
  5. FENTANYL [Concomitant]
     Indication: ANAESTHESIA
  6. PROPOFOL [Concomitant]
     Indication: ANAESTHESIA
     Route: 042
  7. ISOFLURANE [Concomitant]
     Indication: MAINTENANCE OF ANAESTHESIA

REACTIONS (11)
  - ANAESTHETIC COMPLICATION [None]
  - BLISTER [None]
  - BLOOD CREATINE PHOSPHOKINASE INCREASED [None]
  - COMPARTMENT SYNDROME [None]
  - INJECTION SITE ERYTHEMA [None]
  - INJECTION SITE PAIN [None]
  - MUSCLE NECROSIS [None]
  - NERVE COMPRESSION [None]
  - NEUROMUSCULAR BLOCK PROLONGED [None]
  - SCIATIC NERVE PALSY [None]
  - TACHYCARDIA [None]
